FAERS Safety Report 13148157 (Version 4)
Quarter: 2017Q3

REPORT INFORMATION
  Report Type: Report from Study
  Country: US (occurrence: US)
  Receive Date: 20170124
  Receipt Date: 20170728
  Transmission Date: 20171127
  Serious: No
  Sender: FDA-Public Use
  Company Number: US-AMGEN-USASL2016173253

PATIENT
  Age: 75 Year
  Sex: Male
  Weight: 102.4 kg

DRUGS (1)
  1. REPATHA [Suspect]
     Active Substance: EVOLOCUMAB
     Indication: PRODUCT USED FOR UNKNOWN INDICATION
     Dosage: 75 MG/ML, Q2WK
     Route: 065
     Dates: start: 20160921, end: 20161026

REACTIONS (3)
  - Pain [Unknown]
  - Off label use [Unknown]
  - Muscle tone disorder [Unknown]
